FAERS Safety Report 20059009 (Version 1)
Quarter: 2021Q4

REPORT INFORMATION
  Report Type: Spontaneous
  Country: US (occurrence: None)
  Receive Date: 20211111
  Receipt Date: 20211111
  Transmission Date: 20220303
  Serious: Yes (Death, Other)
  Sender: FDA-Public Use
  Company Number: None

PATIENT
  Age: 68 Year
  Sex: Male

DRUGS (1)
  1. BENEFIX [Suspect]
     Active Substance: COAGULATION FACTOR IX RECOMBINANT HUMAN\ISOPROPYL ALCOHOL
     Indication: Factor IX deficiency
     Dosage: OTHER QUANTITY : 5000;?FREQUENCY : DAILY AS NEEDED?
     Route: 042
     Dates: start: 20190730

REACTIONS (2)
  - Injury [None]
  - Internal haemorrhage [None]

NARRATIVE: CASE EVENT DATE: 20211004
